FAERS Safety Report 13911153 (Version 1)
Quarter: 2017Q3

REPORT INFORMATION
  Report Type: Spontaneous
  Country: US (occurrence: US)
  Receive Date: 20170828
  Receipt Date: 20170828
  Transmission Date: 20171127
  Serious: No
  Sender: FDA-Public Use
  Company Number: US-ASTRAZENECA-2017SE86324

PATIENT

DRUGS (1)
  1. BRILINTA [Suspect]
     Active Substance: TICAGRELOR
     Route: 048

REACTIONS (2)
  - Hallucination [Unknown]
  - Confusional state [Unknown]
